FAERS Safety Report 13430739 (Version 2)
Quarter: 2021Q2

REPORT INFORMATION
  Report Type: Report from Study
  Country: UA (occurrence: UA)
  Receive Date: 20170412
  Receipt Date: 20210401
  Transmission Date: 20210716
  Serious: Yes (Death)
  Sender: FDA-Public Use
  Company Number: UA-ROCHE-1027428

PATIENT
  Age: 50 Year
  Sex: Male
  Weight: 76 kg

DRUGS (21)
  1. REFORTAN [Concomitant]
     Active Substance: HETASTARCH
     Indication: HYPOTENSION
     Route: 042
     Dates: start: 20111026, end: 20111027
  2. SOLU?MEDROL [Concomitant]
     Active Substance: METHYLPREDNISOLONE SODIUM SUCCINATE
     Indication: PREMEDICATION
  3. TRISOLUM [Concomitant]
     Indication: HYPOTENSION
     Dosage: SOL. (SOLUTION).
     Route: 042
     Dates: start: 20111026, end: 20111026
  4. NORMAL SALINE [Concomitant]
     Active Substance: SODIUM CHLORIDE
     Indication: DEHYDRATION
     Route: 042
     Dates: start: 20111026, end: 20111026
  5. PAPAVERINE [Concomitant]
     Active Substance: PAPAVERINE
     Indication: HYPERTENSION
     Route: 030
     Dates: start: 20111026, end: 20111026
  6. PREDNISOLONE. [Concomitant]
     Active Substance: PREDNISOLONE
     Route: 042
     Dates: start: 20111026, end: 20111026
  7. RINGERS SOLUTION [Concomitant]
     Active Substance: CALCIUM CHLORIDE\POTASSIUM CHLORIDE\SODIUM CHLORIDE
     Indication: DEHYDRATION
     Route: 042
     Dates: start: 20111026, end: 20111026
  8. METHYLPREDNISOLONE. [Concomitant]
     Active Substance: METHYLPREDNISOLONE
     Indication: PREMEDICATION
     Route: 042
     Dates: start: 20111026, end: 20111026
  9. NORMAL SALINE [Concomitant]
     Active Substance: SODIUM CHLORIDE
     Route: 042
     Dates: start: 20111026, end: 20111026
  10. TAVEGYL [Concomitant]
     Active Substance: CLEMASTINE FUMARATE
     Indication: PRURITUS
     Route: 030
     Dates: start: 20111026, end: 20111026
  11. METHYLPREDNISOLONE. [Concomitant]
     Active Substance: METHYLPREDNISOLONE
     Route: 042
     Dates: start: 20111126, end: 20111127
  12. MAGNESIUM SULPHATE [Concomitant]
     Active Substance: MAGNESIUM SULFATE
     Indication: HYPERTENSION
     Dates: start: 20111026, end: 20111026
  13. ASCORBIN [Concomitant]
     Indication: PETECHIAE
     Route: 042
     Dates: start: 20111026, end: 20111026
  14. METHYLPREDNISOLONE. [Concomitant]
     Active Substance: METHYLPREDNISOLONE
     Route: 042
     Dates: start: 20111201, end: 20111201
  15. PREDNISOLONE. [Concomitant]
     Active Substance: PREDNISOLONE
     Indication: PRURITUS
     Route: 040
     Dates: start: 20111026, end: 20111026
  16. SOLU?MEDROL [Concomitant]
     Active Substance: METHYLPREDNISOLONE SODIUM SUCCINATE
     Indication: PROPHYLAXIS
     Route: 042
     Dates: start: 20111026, end: 20111026
  17. PARACETAMOL [Concomitant]
     Active Substance: ACETAMINOPHEN
     Indication: HYPERPYREXIA
     Dates: start: 20111027, end: 20111027
  18. OCRELIZUMAB. [Suspect]
     Active Substance: OCRELIZUMAB
     Indication: PRIMARY PROGRESSIVE MULTIPLE SCLEROSIS
     Dosage: 200ML INFUSED?INFUSED OVER 2.5 HRS, DOSE: BLINDED.?LAST DOSE PRIOR TO SAE AND SUBSEQUENT DOSE ON 01/
     Route: 042
     Dates: start: 20111026, end: 20111026
  19. TRISOLUM [Concomitant]
     Indication: DEHYDRATION
     Route: 042
     Dates: start: 20111026, end: 20111026
  20. DIBAZOL [Concomitant]
     Indication: HYPERTENSION
     Route: 030
     Dates: start: 20111026, end: 20111026
  21. GLUCOSE [Concomitant]
     Active Substance: DEXTROSE
     Indication: DEHYDRATION
     Route: 042
     Dates: start: 20111026, end: 20111026

REACTIONS (1)
  - Pneumonia [Fatal]

NARRATIVE: CASE EVENT DATE: 20120101
